FAERS Safety Report 7191609-3 (Version None)
Quarter: 2010Q4

REPORT INFORMATION
  Report Type: 
  Country: None (occurrence: None)
  Receive Date: 20101223
  Receipt Date: 20101214
  Transmission Date: 20110411
  Serious: Yes (Other)
  Sender: FDA-Public Use
  Company Number: ES-ROCHE-748424

PATIENT
  Sex: Female

DRUGS (2)
  1. TOCILIZUMAB [Suspect]
     Indication: RHEUMATOID ARTHRITIS
     Dosage: LAST DOSE PRIOR TO SAE WAS ON 16 NOV 2010
     Route: 042
  2. TOCILIZUMAB [Suspect]
     Route: 042
     Dates: start: 20060411, end: 20100901

REACTIONS (1)
  - ARRHYTHMIA [None]
